FAERS Safety Report 7369760-4 (Version None)
Quarter: 2011Q1

REPORT INFORMATION
  Report Type: 
  Country: None (occurrence: None)
  Receive Date: 20110317
  Receipt Date: 20110317
  Transmission Date: 20110831
  Serious: Yes (Disabling)
  Sender: FDA-Public Use
  Company Number: None

PATIENT
  Sex: Female
  Weight: 79.3795 kg

DRUGS (1)
  1. ELMIRON [Suspect]
     Indication: CYSTITIS INTERSTITIAL
     Dosage: 100MG 3XDAILY
     Dates: start: 20100412, end: 20110201

REACTIONS (3)
  - SKIN DISORDER [None]
  - SKIN DISCOLOURATION [None]
  - EYE SWELLING [None]
